FAERS Safety Report 7272854-5 (Version None)
Quarter: 2011Q1

REPORT INFORMATION
  Report Type: 
  Country: None (occurrence: None)
  Receive Date: 20110126
  Receipt Date: 20110113
  Transmission Date: 20110831
  Serious: Yes (Hospitalization, Other)
  Sender: FDA-Public Use
  Company Number: 025447

PATIENT
  Sex: Female

DRUGS (9)
  1. LOXOPROFEN SODIUM [Concomitant]
  2. OLMESARTAN MEDOXOMIL [Concomitant]
  3. PREDNISOLONE [Suspect]
     Indication: RHEUMATOID ARTHRITIS
     Dosage: 5 MG, ORAL
     Route: 048
     Dates: start: 20041126
  4. OMEPRAZOLE [Concomitant]
  5. CERTOLIZUMAB PEGOL (CERTOLIZUMAB PEGOL) [Suspect]
     Indication: RHEUMATOID ARTHRITIS
     Dosage: SEE IMAGE: SUBCUTANEOUS
     Route: 058
     Dates: start: 20100708, end: 20110106
  6. RHEUMATREX [Suspect]
     Indication: RHEUMATOID ARTHRITIS
     Dosage: 8 MG 1X.WEEK, ORAL
     Route: 048
     Dates: start: 20090118, end: 20110109
  7. FERROUS FUMARATE [Concomitant]
  8. REBAMIPIDE [Concomitant]
  9. AMLODIPINE BESYLATE [Concomitant]

REACTIONS (4)
  - CELLULITIS [None]
  - GAIT DISTURBANCE [None]
  - IMMUNE SYSTEM DISORDER [None]
  - INFECTION SUSCEPTIBILITY INCREASED [None]
